FAERS Safety Report 10723490 (Version 2)
Quarter: 2015Q1

REPORT INFORMATION
  Report Type: Spontaneous
  Country: BE (occurrence: BE)
  Receive Date: 20150120
  Receipt Date: 20150327
  Transmission Date: 20150721
  Serious: Yes (Hospitalization)
  Sender: FDA-Public Use
  Company Number: BE-CELGENE-013-21880-14091017

PATIENT
  Age: 59 Year
  Sex: Male
  Weight: 85 kg

DRUGS (19)
  1. DEXAMETHASONE. [Suspect]
     Active Substance: DEXAMETHASONE
     Route: 065
     Dates: start: 200410
  2. EFIENT [Concomitant]
     Active Substance: PRASUGREL HYDROCHLORIDE
     Indication: PRODUCT USED FOR UNKNOWN INDICATION
     Route: 065
  3. REVLIMID [Suspect]
     Active Substance: LENALIDOMIDE
     Route: 048
     Dates: start: 20140505
  4. BLINDED MLN9708 [Suspect]
     Active Substance: IXAZOMIB
     Indication: PLASMA CELL MYELOMA
     Dosage: 4 MILLIGRAM
     Route: 048
     Dates: start: 20131104
  5. CALCIUM CHLORIDE. [Concomitant]
     Active Substance: CALCIUM CHLORIDE
     Indication: PRODUCT USED FOR UNKNOWN INDICATION
     Route: 065
  6. CARDIOASPIRINE [Concomitant]
     Active Substance: ASPIRIN
     Indication: PRODUCT USED FOR UNKNOWN INDICATION
     Route: 065
  7. INSULIN [Concomitant]
     Active Substance: INSULIN NOS
     Indication: PRODUCT USED FOR UNKNOWN INDICATION
     Route: 065
  8. REVLIMID [Suspect]
     Active Substance: LENALIDOMIDE
     Route: 048
     Dates: start: 20131104
  9. DEXAMETHASONE. [Suspect]
     Active Substance: DEXAMETHASONE
     Indication: PLASMA CELL MYELOMA
     Route: 048
     Dates: start: 20131104
  10. DEXAMETHASONE. [Suspect]
     Active Substance: DEXAMETHASONE
     Route: 065
     Dates: end: 20140915
  11. SODIUM LACTATE. [Concomitant]
     Active Substance: SODIUM LACTATE
     Indication: PRODUCT USED FOR UNKNOWN INDICATION
     Route: 065
  12. EMCONCOR [Concomitant]
     Active Substance: BISOPROLOL FUMARATE
     Indication: PRODUCT USED FOR UNKNOWN INDICATION
     Route: 065
  13. NADROPARIN [Concomitant]
     Active Substance: NADROPARIN
     Indication: PRODUCT USED FOR UNKNOWN INDICATION
     Route: 065
  14. POTASSIUM CHLORIDE. [Concomitant]
     Active Substance: POTASSIUM CHLORIDE
     Indication: PRODUCT USED FOR UNKNOWN INDICATION
     Route: 065
  15. REVLIMID [Suspect]
     Active Substance: LENALIDOMIDE
     Indication: PLASMA CELL MYELOMA
     Route: 048
     Dates: start: 20131104
  16. SODIUM CHLORIDE. [Concomitant]
     Active Substance: SODIUM CHLORIDE
     Indication: PRODUCT USED FOR UNKNOWN INDICATION
     Route: 065
  17. PANTOMED [Concomitant]
     Active Substance: DEXPANTHENOL
     Indication: PRODUCT USED FOR UNKNOWN INDICATION
     Route: 065
  18. PULMICORT TURBUHALER [Concomitant]
     Active Substance: BUDESONIDE
     Indication: PRODUCT USED FOR UNKNOWN INDICATION
     Route: 065
  19. DEXAMETHASONE. [Suspect]
     Active Substance: DEXAMETHASONE
     Route: 065
     Dates: start: 201401

REACTIONS (2)
  - Bone pain [Recovered/Resolved]
  - Acute coronary syndrome [Recovered/Resolved]

NARRATIVE: CASE EVENT DATE: 20140902
